FAERS Safety Report 23676068 (Version 1)
Quarter: 2024Q1

REPORT INFORMATION
  Report Type: Spontaneous
  Country: SE (occurrence: SE)
  Receive Date: 20240327
  Receipt Date: 20240327
  Transmission Date: 20240410
  Serious: Yes (Other)
  Sender: FDA-Public Use
  Company Number: None

PATIENT
  Age: 27 Year
  Sex: Female
  Weight: 67 kg

DRUGS (1)
  1. FLUCONAZOLE [Suspect]
     Active Substance: FLUCONAZOLE
     Indication: Genital infection fungal
     Dosage: 1 TABLE/WEEK FOR 3 WEEKS THEN 1 TABLET/MONTH FOR 3 MONTHS
     Route: 048
     Dates: start: 20230320, end: 20230626

REACTIONS (12)
  - Swollen tongue [Not Recovered/Not Resolved]
  - Lip swelling [Recovered/Resolved]
  - Pruritus [Recovering/Resolving]
  - Erythema [Recovered/Resolved]
  - Oral mucosal blistering [Not Recovered/Not Resolved]
  - Headache [Recovered/Resolved]
  - Tremor [Recovered/Resolved]
  - Eye swelling [Recovered/Resolved]
  - Hypogeusia [Recovering/Resolving]
  - Pruritus genital [Recovering/Resolving]
  - Pyrexia [Recovered/Resolved]
  - Oral fungal infection [Recovered/Resolved]

NARRATIVE: CASE EVENT DATE: 20230101
